FAERS Safety Report 4969861-1 (Version None)
Quarter: 2006Q2

REPORT INFORMATION
  Report Type: 
  Country: None (occurrence: None)
  Receive Date: 20060411
  Receipt Date: 20060328
  Transmission Date: 20061013
  Serious: Yes (Hospitalization)
  Sender: FDA-Public Use
  Company Number: AU-MERCK-0603AUS00219

PATIENT
  Sex: Female

DRUGS (4)
  1. WARFARIN [Concomitant]
     Route: 065
     Dates: start: 20050101, end: 20060101
  2. ATENOLOL [Concomitant]
     Route: 048
     Dates: end: 20060101
  3. FAMOTIDINE [Concomitant]
     Route: 048
     Dates: end: 20060101
  4. FOSAMAX [Suspect]
     Indication: OSTEOPOROSIS
     Route: 048
     Dates: start: 20040601, end: 20060101

REACTIONS (3)
  - ARTHRALGIA [None]
  - BONE PAIN [None]
  - DIVERTICULITIS INTESTINAL HAEMORRHAGIC [None]
